FAERS Safety Report 9813836 (Version 1)
Quarter: 2014Q1

REPORT INFORMATION
  Report Type: Spontaneous
  Country: US (occurrence: US)
  Receive Date: 20140113
  Receipt Date: 20140113
  Transmission Date: 20141002
  Serious: No
  Sender: FDA-Public Use
  Company Number: US-GILEAD-2010-0030922

PATIENT
  Age: 65 Year
  Sex: Male
  Weight: 80.91 kg

DRUGS (7)
  1. TRUVADA [Suspect]
     Indication: PROPHYLAXIS AGAINST HIV INFECTION
     Route: 048
  2. BUSPIRONE [Concomitant]
     Indication: ANXIETY
  3. FOSINOPRIL [Concomitant]
     Indication: HYPERTENSION
  4. NAPROXEN [Concomitant]
  5. ZANTAC [Concomitant]
     Indication: GASTROOESOPHAGEAL REFLUX DISEASE
  6. ZOLOFT [Concomitant]
     Indication: DEPRESSION
  7. ZOCOR [Concomitant]
     Indication: HYPERCHOLESTEROLAEMIA

REACTIONS (1)
  - Headache [Recovered/Resolved]
